FAERS Safety Report 8462877-2 (Version None)
Quarter: 2012Q2

REPORT INFORMATION
  Report Type: 
  Country: None (occurrence: None)
  Receive Date: 20120625
  Receipt Date: 20120614
  Transmission Date: 20120825
  Serious: Yes (Other)
  Sender: FDA-Public Use
  Company Number: US-ROCHE-1078527

PATIENT

DRUGS (2)
  1. BONIVA [Suspect]
     Indication: OSTEOPOROSIS
     Dates: start: 20060101, end: 20101001
  2. FOSAMAX [Suspect]
     Indication: OSTEOPOROSIS
     Dates: start: 19950101, end: 20051201

REACTIONS (5)
  - BONE DISORDER [None]
  - STRESS FRACTURE [None]
  - ANXIETY [None]
  - EMOTIONAL DISTRESS [None]
  - FEMUR FRACTURE [None]
